FAERS Safety Report 4511250-8 (Version None)
Quarter: 2004Q4

REPORT INFORMATION
  Report Type: 
  Country: None (occurrence: None)
  Receive Date: 20041122
  Receipt Date: 20041122
  Transmission Date: 20050328
  Serious: Yes (Life-Threatening)
  Sender: FDA-Public Use
  Company Number: None

PATIENT
  Age: 44 Year
  Sex: Male
  Weight: 95.2554 kg

DRUGS (4)
  1. BENICAR HCT [Suspect]
     Indication: HYPERTENSION
     Dosage: 40MG  DAILY ORAL
     Route: 048
     Dates: start: 20040410, end: 20040415
  2. Z-PACK [Concomitant]
  3. ADVAIR DISKUS 100/50 [Concomitant]
  4. ^PUFFER^ [Concomitant]

REACTIONS (4)
  - DIZZINESS [None]
  - FEELING ABNORMAL [None]
  - IMPAIRED DRIVING ABILITY [None]
  - SYNCOPE VASOVAGAL [None]
